FAERS Safety Report 6036394-3 (Version None)
Quarter: 2009Q1

REPORT INFORMATION
  Report Type: 
  Country: None (occurrence: None)
  Receive Date: 20090112
  Receipt Date: 20081229
  Transmission Date: 20090719
  Serious: Yes (Other)
  Sender: FDA-Public Use
  Company Number: CIP08002818

PATIENT
  Age: 87 Year
  Sex: Female

DRUGS (3)
  1. ACTONEL [Suspect]
     Dosage: 150 MG ONCE MONTHLY, ORAL
     Route: 048
     Dates: start: 20080101
  2. HORMONES AND RELATED AGENTS [Concomitant]
  3. ANTIGLAUCOMA PREPARATIONS AND MIOTICS [Concomitant]

REACTIONS (6)
  - DISCOMFORT [None]
  - MOBILITY DECREASED [None]
  - OEDEMA PERIPHERAL [None]
  - PAIN [None]
  - PAIN IN EXTREMITY [None]
  - SWELLING [None]
